FAERS Safety Report 8163275-1 (Version None)
Quarter: 2012Q1

REPORT INFORMATION
  Report Type: 
  Country: None (occurrence: None)
  Receive Date: 20120224
  Receipt Date: 20110506
  Transmission Date: 20120608
  Serious: No
  Sender: FDA-Public Use
  Company Number: US-PFIZER INC-K201100567

PATIENT
  Age: 54 Year
  Sex: Female
  Weight: 108.84 kg

DRUGS (1)
  1. FLECTOR [Suspect]
     Indication: MENISCUS LESION
     Dosage: 1 PATCH, SINGLE
     Route: 061
     Dates: start: 20110505, end: 20110506

REACTIONS (8)
  - APPLICATION SITE DISCHARGE [None]
  - NAUSEA [None]
  - CHILLS [None]
  - HEADACHE [None]
  - APPLICATION SITE PAIN [None]
  - HEART RATE DECREASED [None]
  - PYREXIA [None]
  - APPLICATION SITE EXFOLIATION [None]
